FAERS Safety Report 5589788-4 (Version None)
Quarter: 2007Q4

REPORT INFORMATION
  Report Type: 
  Country: None (occurrence: None)
  Receive Date: 20071212
  Receipt Date: 20070919
  Transmission Date: 20080405
  Serious: Yes (Death, Life-Threatening, Other)
  Sender: FDA-Public Use
  Company Number: USA-2007-0029304

PATIENT
  Age: 17 Year
  Sex: Male

DRUGS (4)
  1. OXYCONTIN [Suspect]
     Indication: DRUG ABUSE
     Dosage: ORAL
     Route: 048
  2. ALCOHOL (ETHANOL) [Suspect]
     Indication: DRUG USE FOR UNKNOWN INDICATION
     Dosage: ORAL
     Route: 048
  3. CANNABINOIDS [Suspect]
     Indication: DRUG USE FOR UNKNOWN INDICATION
  4. COCAINE (COCAINE) [Suspect]
     Indication: DRUG USE FOR UNKNOWN INDICATION

REACTIONS (4)
  - LOSS OF CONSCIOUSNESS [None]
  - MULTIPLE DRUG OVERDOSE [None]
  - SUBSTANCE ABUSE [None]
  - UNRESPONSIVE TO STIMULI [None]
